FAERS Safety Report 13183242 (Version 2)
Quarter: 2017Q1

REPORT INFORMATION
  Report Type: Spontaneous
  Country: AT (occurrence: AT)
  Receive Date: 20170203
  Receipt Date: 20170323
  Transmission Date: 20170428
  Serious: Yes (Death, Other)
  Sender: FDA-Public Use
  Company Number: AT-AMGEN-AUTSP2017015669

PATIENT
  Age: 66 Year
  Sex: Female

DRUGS (10)
  1. CIPROXIN [Concomitant]
     Active Substance: CIPROFLOXACIN
  2. BLINCYTO [Suspect]
     Active Substance: BLINATUMOMAB
     Indication: B-CELL TYPE ACUTE LEUKAEMIA
     Dosage: 9 MUG, QD
     Route: 065
     Dates: start: 20161223
  3. ZARZIO [Concomitant]
     Active Substance: FILGRASTIM
  4. PANTOLOC [Concomitant]
     Active Substance: PANTOPRAZOLE SODIUM
  5. TAZONAM [Concomitant]
     Active Substance: TAZOBACTAM
  6. VIROPEL [Concomitant]
  7. EUSAPRIM [Concomitant]
     Active Substance: SULFAMETHOXAZOLE\TRIMETHOPRIM
  8. VFEND [Concomitant]
     Active Substance: VORICONAZOLE
  9. DEXAMETHASON [Concomitant]
     Active Substance: DEXAMETHASONE
  10. LASIX [Concomitant]
     Active Substance: FUROSEMIDE

REACTIONS (3)
  - Large intestine perforation [Not Recovered/Not Resolved]
  - Septic shock [Fatal]
  - Multiple organ dysfunction syndrome [Fatal]

NARRATIVE: CASE EVENT DATE: 201701
